FAERS Safety Report 9768975 (Version 2)
Quarter: 2015Q4

REPORT INFORMATION
  Report Type: Report from Study
  Country: US (occurrence: US)
  Receive Date: 20131218
  Receipt Date: 20151204
  Transmission Date: 20160305
  Serious: Yes (Death, Hospitalization)
  Sender: FDA-Public Use
  Company Number: US-ROCHE-1310203

PATIENT
  Age: 56 Year
  Sex: Male
  Weight: 51.8 kg

DRUGS (12)
  1. EMEND [Concomitant]
     Active Substance: APREPITANT
     Route: 042
     Dates: start: 20130117
  2. TAXOL [Concomitant]
     Active Substance: PACLITAXEL
     Route: 042
     Dates: start: 20130117
  3. DEXAMETHASONE. [Concomitant]
     Active Substance: DEXAMETHASONE
     Route: 042
     Dates: start: 20130117
  4. AVASTIN [Suspect]
     Active Substance: BEVACIZUMAB
     Indication: LUNG NEOPLASM MALIGNANT
     Route: 042
     Dates: start: 20130117
  5. RELISTOR [Concomitant]
     Active Substance: METHYLNALTREXONE BROMIDE
     Route: 058
     Dates: start: 20130128
  6. ALOXI [Concomitant]
     Active Substance: PALONOSETRON HYDROCHLORIDE
     Route: 042
     Dates: start: 20130117
  7. OXYCODONE [Concomitant]
     Active Substance: OXYCODONE
     Indication: PAIN
     Dosage: 1 TABLET EVERY 4 HOURS
     Route: 048
  8. NEULASTA [Concomitant]
     Active Substance: PEGFILGRASTIM
     Route: 065
  9. CARBOPLATIN. [Concomitant]
     Active Substance: CARBOPLATIN
     Route: 042
     Dates: start: 20130117
  10. BENADRYL [Concomitant]
     Active Substance: DIPHENHYDRAMINE HYDROCHLORIDE
     Route: 042
     Dates: start: 20130117
  11. FAMOTIDINE. [Concomitant]
     Active Substance: FAMOTIDINE
     Route: 042
     Dates: start: 20130117
  12. XGEVA [Concomitant]
     Active Substance: DENOSUMAB
     Route: 058
     Dates: start: 20130117

REACTIONS (23)
  - Sedation [Unknown]
  - Constipation [Unknown]
  - Dizziness [Recovered/Resolved]
  - Fall [Unknown]
  - Feeling abnormal [Unknown]
  - Arthralgia [Unknown]
  - Fatigue [Unknown]
  - Decreased appetite [Unknown]
  - Speech disorder [Unknown]
  - Decubitus ulcer [Recovering/Resolving]
  - Abdominal rigidity [Unknown]
  - Respiratory rate decreased [Unknown]
  - Insomnia [Unknown]
  - Oedema peripheral [Unknown]
  - Abdominal discomfort [Unknown]
  - Abdominal pain lower [Unknown]
  - Asthenia [Unknown]
  - Somnolence [Unknown]
  - Death [Fatal]
  - Disorientation [Unknown]
  - Confusional state [Unknown]
  - Back pain [Unknown]
  - Pain in extremity [Unknown]

NARRATIVE: CASE EVENT DATE: 20130128
